FAERS Safety Report 5020051-6 (Version None)
Quarter: 2006Q2

REPORT INFORMATION
  Report Type: 
  Country: None (occurrence: None)
  Receive Date: 20060607
  Receipt Date: 20060605
  Transmission Date: 20061013
  Serious: Yes (Other)
  Sender: FDA-Public Use
  Company Number: US-GLAXOSMITHKLINE-A0607931A

PATIENT
  Age: 48 Year
  Sex: Female

DRUGS (1)
  1. NABUMETONE [Suspect]
     Indication: RHEUMATOID ARTHRITIS
     Dosage: 1000MG TWICE PER DAY
     Route: 048
     Dates: start: 20050101

REACTIONS (1)
  - RHEUMATOID ARTHRITIS [None]
